FAERS Safety Report 4285037-8 (Version None)
Quarter: 2004Q1

REPORT INFORMATION
  Report Type: 
  Country: None (occurrence: None)
  Receive Date: 20040204
  Receipt Date: 20040108
  Transmission Date: 20041129
  Serious: Yes (Other)
  Sender: FDA-Public Use
  Company Number: WAES 0401CHE00005

PATIENT
  Age: 78 Year
  Sex: Female
  Weight: 75 kg

DRUGS (13)
  1. ACETAMINOPHEN AND CODEINE [Concomitant]
     Indication: PAIN
     Route: 048
  2. ATORVASTATIN CALCIUM [Concomitant]
     Indication: HYPERCHOLESTEROLAEMIA
     Route: 048
  3. ATORVASTATIN CALCIUM [Concomitant]
     Indication: CORONARY ARTERY DISEASE
     Route: 048
  4. DICLOFENAC [Concomitant]
     Indication: PAIN
     Route: 048
  5. COZAAR [Suspect]
     Indication: HYPERTENSION
     Route: 048
     Dates: end: 20030101
  6. COZAAR [Suspect]
     Route: 048
     Dates: start: 20030101, end: 20030910
  7. COZAAR [Suspect]
     Route: 048
     Dates: start: 20030911
  8. COZAAR [Suspect]
     Indication: CORONARY ARTERY DISEASE
     Route: 048
     Dates: end: 20030101
  9. COZAAR [Suspect]
     Route: 048
     Dates: start: 20030101, end: 20030910
  10. COZAAR [Suspect]
     Route: 048
     Dates: start: 20030911
  11. METOPROLOL SUCCINATE [Concomitant]
     Indication: CORONARY ARTERY DISEASE
     Route: 048
  12. OMEPRAZOLE MAGNESIUM [Concomitant]
     Indication: GASTROOESOPHAGEAL REFLUX DISEASE
     Route: 048
  13. PHENPROCOUMON [Concomitant]
     Indication: THROMBOSIS PROPHYLAXIS
     Route: 048

REACTIONS (8)
  - AORTIC STENOSIS [None]
  - BALANCE DISORDER [None]
  - DIZZINESS [None]
  - DYSPNOEA [None]
  - NAUSEA [None]
  - PRESCRIBED OVERDOSE [None]
  - STRESS SYMPTOMS [None]
  - TREATMENT NONCOMPLIANCE [None]
